FAERS Safety Report 14947721 (Version 5)
Quarter: 2018Q4

REPORT INFORMATION
  Report Type: Spontaneous
  Country: CN (occurrence: CN)
  Receive Date: 20180529
  Receipt Date: 20181227
  Transmission Date: 20190204
  Serious: Yes (Other)
  Sender: FDA-Public Use
  Company Number: CN-SA-2018SA138877

PATIENT
  Age: 52 Year
  Sex: Male
  Weight: 90 kg

DRUGS (6)
  1. LANTUS [Suspect]
     Active Substance: INSULIN GLARGINE
     Dosage: 12 IU, QD
     Route: 058
  2. DANSHEN [Concomitant]
     Active Substance: HERBALS
     Indication: CORONARY ARTERY DISEASE
     Dosage: UNK
     Route: 048
  3. LANTUS [Suspect]
     Active Substance: INSULIN GLARGINE
     Indication: TYPE 2 DIABETES MELLITUS
     Dosage: 10 IU QD
     Route: 058
     Dates: start: 201507
  4. LANTUS [Suspect]
     Active Substance: INSULIN GLARGINE
     Dosage: 17 IU, QD
     Route: 058
     Dates: start: 201707
  5. SALVIA MILTIORRHIZA [Concomitant]
     Active Substance: HERBALS
     Indication: CORONARY ARTERY DISEASE
     Dosage: UNK
     Route: 048
  6. LANTUS [Suspect]
     Active Substance: INSULIN GLARGINE
     Dosage: 15 IU, QD
     Route: 058

REACTIONS (4)
  - Blood glucose increased [Not Recovered/Not Resolved]
  - Coronary artery disease [Not Recovered/Not Resolved]
  - Dizziness [Not Recovered/Not Resolved]
  - Drug ineffective [Unknown]

NARRATIVE: CASE EVENT DATE: 2017
